FAERS Safety Report 7506292-4 (Version None)
Quarter: 2011Q2

REPORT INFORMATION
  Report Type: 
  Country: None (occurrence: None)
  Receive Date: 20110526
  Receipt Date: 20110517
  Transmission Date: 20111010
  Serious: Yes (Hospitalization, Other)
  Sender: FDA-Public Use
  Company Number: FR-KINGPHARMUSA00001-K201100605

PATIENT
  Age: 56 Year
  Sex: Male

DRUGS (7)
  1. NITROFURANTOIN [Suspect]
     Indication: URINARY TRACT INFECTION
     Dosage: UNK, ORAL
     Dates: start: 20101215, end: 20110111
  2. OMEPRAZOLE [Concomitant]
     Dosage: 20 MG, UNK
  3. METOPROLOL TARTRATE [Concomitant]
     Dosage: 50 MG, UNK
  4. THERAPEUTIC RADIOPHARMACEUTICALS [Concomitant]
  5. NITROGLYCERIN [Concomitant]
     Dosage: 0.4 MG, UNK
  6. ALTACE [Suspect]
     Indication: CARDIAC FAILURE
     Dosage: 10 MG, QD
     Route: 048
     Dates: start: 20070101, end: 20110121
  7. TROMBYL [Concomitant]
     Dosage: 75 MG, UNK

REACTIONS (5)
  - THROAT TIGHTNESS [None]
  - DYSPNOEA [None]
  - LARYNGEAL OEDEMA [None]
  - URINARY TRACT INFECTION [None]
  - TONSIL CANCER [None]
